FAERS Safety Report 9920854 (Version 1)
Quarter: 2014Q1

REPORT INFORMATION
  Report Type: Report from Study
  Country: IN (occurrence: IN)
  Receive Date: 20140225
  Receipt Date: 20140225
  Transmission Date: 20141002
  Serious: Yes (Hospitalization)
  Sender: FDA-Public Use
  Company Number: IN-AMGEN-INDCT2012085126

PATIENT
  Age: 33 Year
  Sex: Female
  Weight: 46 kg

DRUGS (12)
  1. DARBEPOETIN ALFA [Suspect]
     Indication: NEPHROGENIC ANAEMIA
     Dosage: 30 MUG, QWK
     Route: 040
     Dates: start: 20120127
  2. EPOETIN ALFA [Suspect]
     Indication: PRODUCT USED FOR UNKNOWN INDICATION
     Dosage: UNK
     Route: 065
  3. NIFEDIPINE [Concomitant]
     Dosage: UNK
     Route: 065
     Dates: start: 201204
  4. METOLAZONE [Concomitant]
     Dosage: UNK
     Route: 065
     Dates: start: 20120704
  5. MOXONIDINE [Concomitant]
     Dosage: UNK
     Route: 065
     Dates: start: 20120704
  6. FOLIC ACID [Concomitant]
     Dosage: UNK
     Route: 065
     Dates: start: 20120704
  7. FERROUS ASCORBATE [Concomitant]
     Dosage: UNK
     Route: 065
     Dates: start: 20120704
  8. NEPHROCAPS                         /01801401/ [Concomitant]
     Dosage: UNK
     Route: 065
     Dates: start: 201106
  9. NEPHROCAPS                         /01801401/ [Concomitant]
     Route: 065
     Dates: start: 200907
  10. CALCIUM CARBONATE [Concomitant]
     Dosage: UNK
     Route: 065
     Dates: start: 200907
  11. ASPIRIN [Concomitant]
     Dosage: UNK
     Route: 065
     Dates: start: 201204
  12. METOPROLOL [Concomitant]
     Dosage: UNK
     Route: 065
     Dates: start: 201207

REACTIONS (1)
  - Gastroenteritis [Recovered/Resolved]
